FAERS Safety Report 7952540-6 (Version None)
Quarter: 2011Q4

REPORT INFORMATION
  Report Type: 
  Country: None (occurrence: None)
  Receive Date: 20111201
  Receipt Date: 20111128
  Transmission Date: 20120403
  Serious: Yes (Death, Other)
  Sender: FDA-Public Use
  Company Number: PHHY2011GB72652

PATIENT
  Age: 71 Year
  Sex: Male
  Weight: 50 kg

DRUGS (9)
  1. VENLAFAXINE [Suspect]
     Indication: DEPRESSION
     Dosage: 187.5 MG/DAY
     Route: 048
     Dates: start: 20101222, end: 20110118
  2. CLOPIDOGREL [Concomitant]
     Dosage: 75 MG, QD
  3. VENLAFAXINE [Suspect]
     Dosage: 75 MG, BID
     Dates: start: 20110119
  4. VALPROATE SODIUM [Concomitant]
     Dosage: 800 MG, UNK
     Dates: start: 20101216
  5. SIMVASTATIN [Concomitant]
     Dosage: 40 MG, QD
  6. BISOPROLOL FUMARATE [Concomitant]
     Dosage: 1.25 MG, QD
  7. RANITIDINE [Concomitant]
     Dosage: 300 MG, BID
     Route: 048
  8. ASPIRIN [Concomitant]
     Dosage: 75 MG, QD
  9. OLANZAPINE [Concomitant]
     Dosage: 5 MG, UNK
     Route: 048
     Dates: start: 20110119

REACTIONS (21)
  - PULMONARY OEDEMA [None]
  - HYPOTENSION [None]
  - EMPHYSEMA [None]
  - CORONARY ARTERY OCCLUSION [None]
  - PULMONARY CONGESTION [None]
  - UNRESPONSIVE TO STIMULI [None]
  - PAIN [None]
  - CIRCULATORY COLLAPSE [None]
  - SOMNOLENCE [None]
  - NASOPHARYNGITIS [None]
  - TREMOR [None]
  - FLUID RETENTION [None]
  - TOXICITY TO VARIOUS AGENTS [None]
  - SUBDURAL HAEMATOMA [None]
  - BRONCHITIS [None]
  - ABDOMINAL PAIN UPPER [None]
  - HEART RATE ABNORMAL [None]
  - DRUG LEVEL INCREASED [None]
  - SILICOSIS [None]
  - VOMITING [None]
  - BALANCE DISORDER [None]
